FAERS Safety Report 7692476-1 (Version None)
Quarter: 2011Q3

REPORT INFORMATION
  Report Type: 
  Country: None (occurrence: None)
  Receive Date: 20110818
  Receipt Date: 20081113
  Transmission Date: 20111222
  Serious: Yes (Death, Other)
  Sender: FDA-Public Use
  Company Number: US-PFIZER INC-2008073833

PATIENT
  Sex: Female
  Weight: 59 kg

DRUGS (3)
  1. NEURONTIN [Suspect]
     Route: 048
  2. NEURONTIN [Suspect]
     Indication: PAIN
  3. GABAPENTIN [Suspect]

REACTIONS (4)
  - COMPLETED SUICIDE [None]
  - SUICIDAL IDEATION [None]
  - DRUG INEFFECTIVE FOR UNAPPROVED INDICATION [None]
  - ANXIETY [None]
